FAERS Safety Report 4980709-1 (Version None)
Quarter: 2006Q2

REPORT INFORMATION
  Report Type: 
  Country: None (occurrence: None)
  Receive Date: 20060424
  Receipt Date: 20060111
  Transmission Date: 20061013
  Serious: Yes (Death, Hospitalization)
  Sender: FDA-Public Use
  Company Number: US-MERCK-0601USA01322

PATIENT
  Age: 82 Year
  Sex: Female
  Weight: 58 kg

DRUGS (14)
  1. VIOXX [Suspect]
     Indication: ARTHRITIS
     Route: 048
     Dates: start: 20020104, end: 20031111
  2. VIOXX [Suspect]
     Route: 065
     Dates: start: 20020104, end: 20031111
  3. ACTONEL [Concomitant]
     Route: 065
  4. ACIPHEX [Concomitant]
     Route: 065
  5. FOSAMAX [Concomitant]
     Route: 065
  6. DIOVAN [Concomitant]
     Route: 065
  7. FLUOXETINE [Concomitant]
     Route: 065
  8. HEMOCYTE [Concomitant]
     Route: 065
  9. MIACALCIN [Concomitant]
     Route: 065
  10. NORVASC [Concomitant]
     Route: 065
  11. ZOCOR [Concomitant]
     Route: 065
     Dates: start: 20000919, end: 20031101
  12. NEXIUM [Concomitant]
     Route: 065
  13. LIPITOR [Concomitant]
     Route: 065
     Dates: start: 20000919, end: 20031101
  14. VITUSSIN (GUAIFENESIN) [Concomitant]
     Route: 065

REACTIONS (3)
  - CEREBROVASCULAR ACCIDENT [None]
  - HYPERTENSION [None]
  - MYOCARDIAL INFARCTION [None]
